FAERS Safety Report 7119017-1 (Version None)
Quarter: 2010Q4

REPORT INFORMATION
  Report Type: 
  Country: None (occurrence: None)
  Receive Date: 20101123
  Receipt Date: 20101117
  Transmission Date: 20110411
  Serious: Yes (Hospitalization)
  Sender: FDA-Public Use
  Company Number: A0893015A

PATIENT
  Age: 52 Year
  Sex: Male

DRUGS (4)
  1. AVANDIA [Suspect]
     Dosage: 4MG TWICE PER DAY
     Route: 048
     Dates: start: 19980101, end: 20080511
  2. METFORMIN HCL [Concomitant]
  3. GLIPIZIDE [Concomitant]
  4. NORVASC [Concomitant]

REACTIONS (7)
  - CARDIAC DISORDER [None]
  - CEREBROVASCULAR ACCIDENT [None]
  - EYE DISORDER [None]
  - HEADACHE [None]
  - HEMIPLEGIA [None]
  - MEMORY IMPAIRMENT [None]
  - PALPITATIONS [None]
